FAERS Safety Report 23384561 (Version 1)
Quarter: 2024Q1

REPORT INFORMATION
  Report Type: Spontaneous
  Country: BR (occurrence: BR)
  Receive Date: 20240109
  Receipt Date: 20240109
  Transmission Date: 20240409
  Serious: No
  Sender: FDA-Public Use
  Company Number: BR-WW-2023-AMR-177160

PATIENT
  Age: 21 Year
  Sex: Female

DRUGS (1)
  1. DUTASTERIDE [Suspect]
     Active Substance: DUTASTERIDE
     Indication: Alopecia
     Dosage: 0.5 MG, 1 DF, QD
     Route: 065

REACTIONS (2)
  - Product prescribing issue [Unknown]
  - Product use issue [Unknown]
